FAERS Safety Report 6401550-9 (Version None)
Quarter: 2009Q4

REPORT INFORMATION
  Report Type: 
  Country: None (occurrence: None)
  Receive Date: 20091009
  Receipt Date: 20090928
  Transmission Date: 20100525
  Serious: Yes (Hospitalization)
  Sender: FDA-Public Use
  Company Number: 230136J09BRA

PATIENT
  Age: 38 Year
  Sex: Female

DRUGS (6)
  1. REBIF [Suspect]
     Indication: MULTIPLE SCLEROSIS
     Dosage: 44 MCG, 3 IN 1 WEEKS
     Dates: start: 20090801
  2. DIAZEPAN (DIAZEPAN) [Concomitant]
  3. BACLOFEM (BACLOFEN) [Concomitant]
  4. RANITDINE (RANTIDINE /00550801/) [Concomitant]
  5. SERTRALINE HCL [Concomitant]
  6. PARACEMATOL (PARACEMATOL) [Concomitant]

REACTIONS (3)
  - ASTHENIA [None]
  - HEADACHE [None]
  - PNEUMONIA [None]
